FAERS Safety Report 14245977 (Version 2)
Quarter: 2017Q4

REPORT INFORMATION
  Report Type: Spontaneous
  Country: US (occurrence: US)
  Receive Date: 20171204
  Receipt Date: 20171208
  Transmission Date: 20180321
  Serious: No
  Sender: FDA-Public Use
  Company Number: US-BIOFRONTERA-000424

PATIENT
  Age: 32 Year
  Sex: Female

DRUGS (1)
  1. AMELUZ [Suspect]
     Active Substance: AMINOLEVULINIC ACID HYDROCHLORIDE
     Indication: ACTINIC KERATOSIS
     Route: 061
     Dates: start: 20171103, end: 20171103

REACTIONS (5)
  - Application site erythema [Recovering/Resolving]
  - Application site exfoliation [Recovering/Resolving]
  - Burns first degree [Recovering/Resolving]
  - Application site pustules [Recovered/Resolved]
  - Application site warmth [Recovering/Resolving]

NARRATIVE: CASE EVENT DATE: 201711
